FAERS Safety Report 9269106 (Version 1)
Quarter: 2013Q2

REPORT INFORMATION
  Report Type: Spontaneous
  Country: FR (occurrence: None)
  Receive Date: 20130430
  Receipt Date: 20130430
  Transmission Date: 20140414
  Serious: Yes (Death, Hospitalization, Disabling)
  Sender: FDA-Public Use
  Company Number: FR-CLINIGEN HEALTHCARE LIMITED-003055

PATIENT
  Age: 4 Year
  Sex: Male

DRUGS (1)
  1. FOSCAVIR [Suspect]
     Indication: CYTOMEGALOVIRUS INFECTION
     Dosage: 3 WEEKS
     Dates: start: 200903

REACTIONS (4)
  - Renal failure acute [None]
  - Respiratory distress [None]
  - Shock [None]
  - Cytomegalovirus infection [None]
